FAERS Safety Report 25586130 (Version 1)
Quarter: 2025Q3

REPORT INFORMATION
  Report Type: Spontaneous
  Country: KR (occurrence: KR)
  Receive Date: 20250721
  Receipt Date: 20250721
  Transmission Date: 20251021
  Serious: Yes (Other)
  Sender: MYLAN
  Company Number: KR-MYLANLABS-2025M1059346

PATIENT
  Age: 59 Year
  Sex: Female

DRUGS (4)
  1. LYRICA [Suspect]
     Active Substance: PREGABALIN
     Indication: Paraesthesia
     Dosage: 1 DOSAGE FORM, BID
     Dates: start: 20221031
  2. LYRICA [Suspect]
     Active Substance: PREGABALIN
     Dosage: 1 DOSAGE FORM, BID
     Route: 065
     Dates: start: 20221031
  3. LYRICA [Suspect]
     Active Substance: PREGABALIN
     Dosage: 1 DOSAGE FORM, BID
     Route: 065
     Dates: start: 20221031
  4. LYRICA [Suspect]
     Active Substance: PREGABALIN
     Dosage: 1 DOSAGE FORM, BID
     Dates: start: 20221031

REACTIONS (2)
  - Hallucination, visual [Recovered/Resolved]
  - Off label use [Unknown]

NARRATIVE: CASE EVENT DATE: 20221031
